FAERS Safety Report 5409603-9 (Version None)
Quarter: 2007Q3

REPORT INFORMATION
  Report Type: 
  Country: None (occurrence: None)
  Receive Date: 20070809
  Receipt Date: 20070731
  Transmission Date: 20080115
  Serious: Yes (Other)
  Sender: FDA-Public Use
  Company Number: US-GENENTECH-245462

PATIENT
  Sex: Male
  Weight: 90.703 kg

DRUGS (6)
  1. RITUXAN [Suspect]
     Indication: RHEUMATOID ARTHRITIS
     Dosage: 1000 MG, DAYS 1+14
     Route: 042
     Dates: start: 20070625
  2. METHOTREXATE [Concomitant]
     Indication: DRUG USE FOR UNKNOWN INDICATION
  3. TRAMADOL HCL [Concomitant]
     Indication: PAIN
  4. ATENOLOL [Concomitant]
     Indication: HYPERTENSION
  5. LEXAPRO [Concomitant]
     Indication: DEPRESSION
  6. PROTONIX [Concomitant]
     Indication: GASTRIC DISORDER

REACTIONS (3)
  - DIZZINESS [None]
  - DYSKINESIA [None]
  - FATIGUE [None]
